FAERS Safety Report 6554200-5 (Version None)
Quarter: 2010Q1

REPORT INFORMATION
  Report Type: 
  Country: None (occurrence: None)
  Receive Date: 20100127
  Receipt Date: 20100114
  Transmission Date: 20100710
  Serious: Yes (Hospitalization)
  Sender: FDA-Public Use
  Company Number: JP-WATSON-2010-00597

PATIENT
  Age: 34 Year
  Sex: Female

DRUGS (4)
  1. RISPERIDONE [Suspect]
     Indication: SCHIZOPHRENIA
     Dosage: UNK
  2. DEXTROMETHORPHAN [Suspect]
     Indication: NASOPHARYNGITIS
     Dosage: UP TO 180 MG OVER SEVERAL DAYS
  3. AMITRIPTYLINE HCL [Suspect]
     Indication: SCHIZOPHRENIA
     Dosage: UNK
  4. LEVOMEPROMAZINE [Suspect]
     Indication: SCHIZOPHRENIA
     Dosage: UNK

REACTIONS (2)
  - DRUG INTERACTION [None]
  - SEROTONIN SYNDROME [None]
